FAERS Safety Report 25723507 (Version 2)
Quarter: 2025Q4

REPORT INFORMATION
  Report Type: Spontaneous
  Country: BR (occurrence: BR)
  Receive Date: 20250825
  Receipt Date: 20251024
  Transmission Date: 20260117
  Serious: Yes (Other)
  Sender: NOVO NORDISK
  Company Number: BR-NOVOPROD-1474968

PATIENT
  Age: 44 Year
  Sex: Female

DRUGS (2)
  1. SAXENDA [Suspect]
     Active Substance: LIRAGLUTIDE
     Dosage: 1.8 MG
  2. SAXENDA [Suspect]
     Active Substance: LIRAGLUTIDE
     Indication: Product used for unknown indication
     Dosage: UNK
     Dates: start: 20250101

REACTIONS (6)
  - Blood glucose increased [Unknown]
  - Injection site injury [Unknown]
  - Device mechanical issue [Unknown]
  - Device malfunction [Unknown]
  - Product quality issue [Unknown]
  - Wrong technique in product usage process [Unknown]
